FAERS Safety Report 5200475-4 (Version None)
Quarter: 2007Q1

REPORT INFORMATION
  Report Type: 
  Country: None (occurrence: None)
  Receive Date: 20070105
  Receipt Date: 20061227
  Transmission Date: 20070707
  Serious: Yes (Hospitalization)
  Sender: FDA-Public Use
  Company Number: DE-MERCK-0701USA00079

PATIENT
  Age: 81 Year
  Sex: Female

DRUGS (11)
  1. ZESTRIL [Suspect]
     Route: 048
  2. HYDRODIURIL [Suspect]
     Route: 048
  3. CONCOR [Suspect]
     Route: 048
  4. PROTHIPENDYL HYDROCHLORIDE [Suspect]
     Route: 048
     Dates: start: 20030112, end: 20030114
  5. PROTHIPENDYL HYDROCHLORIDE [Suspect]
     Route: 048
     Dates: start: 20030115
  6. HALDOL [Suspect]
     Route: 048
  7. TRUXAL (CHLORPROTHIXENE HYDROCHLORIDE) [Suspect]
     Route: 048
     Dates: start: 20030115, end: 20030115
  8. TRUXAL (CHLORPROTHIXENE HYDROCHLORIDE) [Suspect]
     Route: 048
     Dates: start: 20030116, end: 20030117
  9. TRUXAL (CHLORPROTHIXENE HYDROCHLORIDE) [Suspect]
     Route: 048
     Dates: start: 20030118, end: 20030118
  10. TRUXAL (CHLORPROTHIXENE HYDROCHLORIDE) [Suspect]
     Route: 048
     Dates: start: 20030119
  11. ARICEPT [Concomitant]
     Route: 048

REACTIONS (2)
  - DRUG INTERACTION [None]
  - SYNCOPE [None]
